FAERS Safety Report 26031865 (Version 2)
Quarter: 2025Q4

REPORT INFORMATION
  Report Type: Report from Study
  Country: US (occurrence: US)
  Receive Date: 20251112
  Receipt Date: 20251226
  Transmission Date: 20260117
  Serious: Yes (Other)
  Sender: ABBVIE
  Company Number: US-ABBVIE-6421331

PATIENT
  Age: 69 Year
  Sex: Female
  Weight: 58 kg

DRUGS (5)
  1. VYALEV [Suspect]
     Active Substance: FOSCARBIDOPA\FOSLEVODOPA
     Indication: Parkinson^s disease
     Route: 058
     Dates: start: 20250121
  2. MOBIC [Concomitant]
     Active Substance: MELOXICAM
     Indication: Arthralgia
     Dates: start: 2019
  3. WELLBUTRIN [Concomitant]
     Active Substance: BUPROPION HYDROCHLORIDE
     Indication: Affective disorder
     Route: 048
     Dates: start: 2017
  4. Dulcolax [Concomitant]
     Indication: Constipation
     Dates: start: 2021
  5. PLAQUENIL [Concomitant]
     Active Substance: HYDROXYCHLOROQUINE SULFATE
     Indication: Lupus-like syndrome
     Route: 048
     Dates: start: 20241001

REACTIONS (8)
  - Fatigue [Not Recovered/Not Resolved]
  - Diplopia [Not Recovered/Not Resolved]
  - Infusion site bruising [Not Recovered/Not Resolved]
  - Infusion site pain [Not Recovered/Not Resolved]
  - Infusion site haemorrhage [Not Recovered/Not Resolved]
  - Catheter site discharge [Unknown]
  - Insomnia [Recovering/Resolving]
  - Infusion site swelling [Not Recovered/Not Resolved]

NARRATIVE: CASE EVENT DATE: 20250101
